FAERS Safety Report 5604771-8 (Version None)
Quarter: 2008Q1

REPORT INFORMATION
  Report Type: 
  Country: None (occurrence: None)
  Receive Date: 20080128
  Receipt Date: 20080122
  Transmission Date: 20080703
  Serious: Yes (Hospitalization, Other)
  Sender: FDA-Public Use
  Company Number: ZA-BRISTOL-MYERS SQUIBB COMPANY-14053268

PATIENT
  Age: 30 Year
  Sex: Male

DRUGS (1)
  1. STOPAYNE [Suspect]

REACTIONS (1)
  - ACCIDENTAL OVERDOSE [None]
